FAERS Safety Report 18392753 (Version 2)
Quarter: 2020Q4

REPORT INFORMATION
  Report Type: Report from Study
  Country: AU (occurrence: AU)
  Receive Date: 20201016
  Receipt Date: 20201123
  Transmission Date: 20210114
  Serious: Yes (Hospitalization)
  Sender: FDA-Public Use
  Company Number: AU-PFIZER INC-2019-07093

PATIENT
  Age: 68 Year
  Sex: Male
  Weight: 72 kg

DRUGS (9)
  1. BINIMETINIB [Suspect]
     Active Substance: BINIMETINIB
     Indication: MALIGNANT MELANOMA
  2. RIBOCICLIB. [Suspect]
     Active Substance: RIBOCICLIB
     Indication: MALIGNANT MELANOMA
  3. CELESTONE [Concomitant]
     Active Substance: BETAMETHASONE
     Indication: ECZEMA
     Dosage: UNK
     Route: 061
     Dates: start: 20181122, end: 202001
  4. MICARDIS [Concomitant]
     Active Substance: TELMISARTAN
     Indication: HYPERTENSION
     Dosage: 20 MG, 1X/DAY
     Route: 048
     Dates: start: 20160217, end: 20191224
  5. VITAMIN D [ERGOCALCIFEROL] [Concomitant]
     Active Substance: ERGOCALCIFEROL
     Indication: OSTEOPOROSIS PROPHYLAXIS
     Dosage: UNK, 1X/DAY (1)
     Route: 048
     Dates: start: 20160707
  6. ENCORAFENIB [Suspect]
     Active Substance: ENCORAFENIB
     Indication: NEOPLASM
     Dosage: 100 MG, 1X/DAY
     Route: 048
     Dates: start: 20160217, end: 20191224
  7. ENCORAFENIB [Suspect]
     Active Substance: ENCORAFENIB
     Indication: MALIGNANT MELANOMA
  8. BINIMETINIB [Suspect]
     Active Substance: BINIMETINIB
     Indication: NEOPLASM
     Dosage: 30 MG, 2X/DAY
     Route: 048
     Dates: start: 20160217, end: 20191224
  9. RIBOCICLIB. [Suspect]
     Active Substance: RIBOCICLIB
     Indication: NEOPLASM
     Dosage: 400 MG, 1X/DAY (3WEEKS ON, 1 WEEK OFF)
     Route: 048
     Dates: start: 20160217, end: 20191224

REACTIONS (2)
  - Pyrexia [Recovered/Resolved]
  - Polyarthritis [Recovered/Resolved]

NARRATIVE: CASE EVENT DATE: 20191224
